FAERS Safety Report 10177774 (Version 1)
Quarter: 2014Q2

REPORT INFORMATION
  Report Type: Spontaneous
  Country: US (occurrence: US)
  Receive Date: 20140516
  Receipt Date: 20140516
  Transmission Date: 20141212
  Serious: No
  Sender: FDA-Public Use
  Company Number: US-SANOFI-AVENTIS-2013SA077398

PATIENT
  Age: 47 Year
  Sex: Male

DRUGS (1)
  1. APIDRA [Suspect]
     Dosage: DOSE:10 UNIT(S)
     Route: 058

REACTIONS (1)
  - Visual acuity reduced [Not Recovered/Not Resolved]
